FAERS Safety Report 5266144-X (Version None)
Quarter: 2007Q1

REPORT INFORMATION
  Report Type: 
  Country: None (occurrence: None)
  Receive Date: 20070305
  Receipt Date: 20070219
  Transmission Date: 20070707
  Serious: Yes (Hospitalization)
  Sender: FDA-Public Use
  Company Number: B0460306A

PATIENT
  Age: 54 Year
  Sex: Female
  Weight: 57.879 kg

DRUGS (1)
  1. LITHIUM CARBONATE [Suspect]
     Indication: SCHIZOPHRENIA, DISORGANISED TYPE

REACTIONS (14)
  - ANTIPSYCHOTIC DRUG LEVEL BELOW THERAPEUTIC [None]
  - BACK PAIN [None]
  - DEHYDRATION [None]
  - DISORIENTATION [None]
  - HYPERCALCAEMIA [None]
  - HYPERKALAEMIA [None]
  - HYPERNATRAEMIA [None]
  - HYPERPARATHYROIDISM [None]
  - HYPOPHOSPHATAEMIA [None]
  - INTERVERTEBRAL DISC PROTRUSION [None]
  - NEPHROGENIC DIABETES INSIPIDUS [None]
  - RENAL FAILURE [None]
  - SOMNOLENCE [None]
  - STATUS EPILEPTICUS [None]
